FAERS Safety Report 20050396 (Version 3)
Quarter: 2022Q1

REPORT INFORMATION
  Report Type: Spontaneous
  Country: US (occurrence: None)
  Receive Date: 20211109
  Receipt Date: 20220217
  Transmission Date: 20220423
  Serious: No
  Sender: FDA-Public Use
  Company Number: 2021A795209

PATIENT
  Age: 21658 Day
  Sex: Male
  Weight: 97.5 kg

DRUGS (1)
  1. BYDUREON BCISE [Suspect]
     Active Substance: EXENATIDE
     Indication: Diabetes mellitus
     Route: 058

REACTIONS (5)
  - Pain [Unknown]
  - Injection site haemorrhage [Unknown]
  - Injection site pain [Unknown]
  - Device use issue [Unknown]
  - Needle issue [Unknown]

NARRATIVE: CASE EVENT DATE: 20211102
